FAERS Safety Report 10183799 (Version 1)
Quarter: 2014Q2

REPORT INFORMATION
  Report Type: Spontaneous
  Country: IN (occurrence: IN)
  Receive Date: 20140520
  Receipt Date: 20140520
  Transmission Date: 20141212
  Serious: Yes (Other)
  Sender: FDA-Public Use
  Company Number: IN-ACTAVIS-2014-10475

PATIENT
  Age: 26 Year
  Sex: Female
  Weight: 36 kg

DRUGS (3)
  1. PHENYTOIN (AMALLC) [Suspect]
     Indication: GENERALISED TONIC-CLONIC SEIZURE
     Dosage: 100 MG, TID
     Route: 065
  2. THYROXIN [Concomitant]
     Indication: HYPOTHYROIDISM
     Dosage: 50 ?G, DAILY
     Route: 065
  3. CALCIUM [Concomitant]
     Indication: PRODUCT USED FOR UNKNOWN INDICATION
     Dosage: UNK
     Route: 065

REACTIONS (2)
  - Hypochromic anaemia [Unknown]
  - Gingival hyperplasia [Unknown]
